FAERS Safety Report 8814495 (Version 1)
Quarter: 2012Q4

REPORT INFORMATION
  Report Type: 
  Country: BE (occurrence: BE)
  Receive Date: 20120928
  Receipt Date: 20120928
  Transmission Date: 20130627
  Serious: Yes (Death, Life-Threatening, Hospitalization, Other)
  Sender: FDA-Public Use
  Company Number: BE-JNJFOC-20120909913

PATIENT

DRUGS (8)
  1. ABCIXIMAB [Suspect]
     Indication: ANGIOGRAM
     Dosage: as bolus
     Route: 042
  2. ABCIXIMAB [Suspect]
     Indication: ANGIOGRAM
     Route: 042
  3. UNFRACTIONATED HEPARIN [Suspect]
     Indication: ANTICOAGULANT THERAPY
     Dosage: 40 to 70 U/Kg
     Route: 065
  4. ASPIRIN [Suspect]
     Indication: ANTICOAGULANT THERAPY
     Dosage: 160- 325 mg/d
     Route: 048
  5. ASPIRIN [Suspect]
     Indication: ANTICOAGULANT THERAPY
     Dosage: 80-125 mg/d
     Route: 048
  6. ASPIRIN [Suspect]
     Indication: ANTICOAGULANT THERAPY
     Route: 042
  7. CLOPIDOGREL [Suspect]
     Indication: ANTICOAGULANT THERAPY
     Dosage: for atleast 3 months
     Route: 048
  8. CLOPIDOGREL [Suspect]
     Indication: ANTICOAGULANT THERAPY
     Route: 048

REACTIONS (10)
  - Haemorrhage [Unknown]
  - Death [Fatal]
  - Haemoglobin decreased [Unknown]
  - Haemodynamic instability [Unknown]
  - Retroperitoneal haemorrhage [Unknown]
  - Myocardial infarction [Unknown]
  - Gastrointestinal haemorrhage [Unknown]
  - Urogenital haemorrhage [Unknown]
  - Pericardial haemorrhage [Unknown]
  - Pulmonary haemorrhage [Unknown]
